FAERS Safety Report 8941099 (Version 2)
Quarter: 2014Q4

REPORT INFORMATION
  Report Type: Report from Study
  Country: BR (occurrence: BR)
  Receive Date: 20121203
  Receipt Date: 20141106
  Transmission Date: 20150529
  Serious: Yes (Life-Threatening, Hospitalization, Other)
  Sender: FDA-Public Use
  Company Number: BR-ROCHE-1162417

PATIENT
  Age: 51 Year
  Sex: Male
  Weight: 82 kg

DRUGS (11)
  1. OMEPRAZOL [Concomitant]
     Active Substance: OMEPRAZOLE
     Route: 065
  2. FORASEQ (BRAZIL) [Concomitant]
     Active Substance: BUDESONIDE\FORMOTEROL FUMARATE
     Dosage: 12/400 UG
     Route: 065
     Dates: start: 201205
  3. FORASEQ (BRAZIL) [Concomitant]
     Active Substance: BUDESONIDE\FORMOTEROL FUMARATE
     Dosage: 12/400 UG
     Route: 065
     Dates: start: 200712
  4. BROMOPRIDA [Concomitant]
  5. RIVOTRIL [Concomitant]
     Active Substance: CLONAZEPAM
     Route: 065
     Dates: start: 200712
  6. XOLAIR [Suspect]
     Active Substance: OMALIZUMAB
     Dosage: 2 APPLICATIONS A MONTH
     Route: 065
     Dates: start: 201107
  7. PREDNISONE. [Suspect]
     Active Substance: PREDNISONE
     Indication: ASTHMA
     Route: 065
     Dates: start: 200712
  8. CARDIZEM [Concomitant]
     Active Substance: DILTIAZEM HYDROCHLORIDE
     Route: 065
     Dates: start: 201201
  9. CARDIZEM [Concomitant]
     Active Substance: DILTIAZEM HYDROCHLORIDE
     Route: 065
     Dates: start: 2010
  10. XOLAIR [Suspect]
     Active Substance: OMALIZUMAB
     Indication: ASTHMA
     Dosage: ROUTE: INHALATION
     Route: 050
     Dates: start: 2009, end: 2010
  11. XOLAIR [Suspect]
     Active Substance: OMALIZUMAB
     Route: 065
     Dates: start: 201112, end: 201112

REACTIONS (12)
  - Incorrect route of drug administration [Unknown]
  - Bronchospasm [Recovering/Resolving]
  - Urinary tract infection [Unknown]
  - Cataract [Recovering/Resolving]
  - Glaucoma [Recovering/Resolving]
  - Weight increased [Recovering/Resolving]
  - No therapeutic response [Unknown]
  - Cardiopulmonary failure [Unknown]
  - Renal impairment [Recovering/Resolving]
  - Asthma [Recovering/Resolving]
  - Visual impairment [Recovering/Resolving]
  - Arrhythmia [Recovering/Resolving]

NARRATIVE: CASE EVENT DATE: 2009
